FAERS Safety Report 20190008 (Version 3)
Quarter: 2022Q1

REPORT INFORMATION
  Report Type: Spontaneous
  Country: DE (occurrence: DE)
  Receive Date: 20211215
  Receipt Date: 20220103
  Transmission Date: 20220423
  Serious: Yes (Hospitalization, Other)
  Sender: FDA-Public Use
  Company Number: None

PATIENT
  Age: 53 Year
  Sex: Female

DRUGS (14)
  1. TRAMADOL [Suspect]
     Active Substance: TRAMADOL
     Indication: Neuralgia
     Dosage: 50 MILLIGRAM, QD, START DATE: 05-AUG-2021
     Route: 048
     Dates: start: 20210805
  2. TRAMADOL [Suspect]
     Active Substance: TRAMADOL
     Dosage: 100 MILLIGRAM, QD, START DATE: 06-AUG-2021
     Route: 048
     Dates: start: 20210806, end: 20210812
  3. TRAMADOL [Suspect]
     Active Substance: TRAMADOL
     Dosage: 200 MILLIGRAM, QD, START DATE: 13-AUG-2021
     Route: 048
     Dates: start: 20210813
  4. METOCLOPRAMIDE [Suspect]
     Active Substance: METOCLOPRAMIDE
     Indication: Neuralgia
     Dosage: 30 MILLIGRAM, QD, START DATE: 06-AUG-2021
     Route: 048
     Dates: start: 20210806, end: 20210829
  5. PREGABALIN [Suspect]
     Active Substance: PREGABALIN
     Indication: Neuralgia
     Dosage: 25 MILLIGRAM, QD
     Route: 048
     Dates: start: 20210628, end: 20210630
  6. PREGABALIN [Suspect]
     Active Substance: PREGABALIN
     Dosage: 25-150MG
     Route: 048
     Dates: start: 20210729
  7. PREGABALIN [Suspect]
     Active Substance: PREGABALIN
     Dosage: 150 MILLIGRAM
     Route: 048
     Dates: start: 20210729
  8. METAMIZOLE [Suspect]
     Active Substance: METAMIZOLE
     Indication: Product used for unknown indication
     Dosage: 1500 MILLIGRAM, QD
     Route: 048
     Dates: start: 20210628
  9. METAMIZOLE [Suspect]
     Active Substance: METAMIZOLE
     Dosage: 2000 MILLIGRAM, QD
     Route: 048
     Dates: start: 20210629, end: 20210713
  10. METAMIZOLE [Suspect]
     Active Substance: METAMIZOLE
     Dosage: 5000 MILLIGRAM, QD
     Dates: start: 20210714
  11. RISPERDAL [Suspect]
     Active Substance: RISPERIDONE
     Indication: Psychotic disorder
     Dosage: 2 MILLIGRAM, QD
     Route: 048
     Dates: start: 20210601, end: 20210627
  12. RISPERDAL [Suspect]
     Active Substance: RISPERIDONE
     Indication: Amnestic disorder
     Dosage: 3 MILLIGRAM, QD, START DATE: 28-JUN-2021
     Route: 048
     Dates: start: 20210628
  13. RISPERDAL [Suspect]
     Active Substance: RISPERIDONE
     Indication: Hallucination
     Dosage: UNK
  14. DEXAMETHASONE [Suspect]
     Active Substance: DEXAMETHASONE
     Indication: Neuralgia
     Dosage: 2 MILLIGRAM, QD
     Dates: start: 20210601

REACTIONS (4)
  - Hepatic enzyme increased [Not Recovered/Not Resolved]
  - Gamma-glutamyltransferase increased [Recovering/Resolving]
  - Alanine aminotransferase increased [Recovering/Resolving]
  - Aspartate aminotransferase increased [Recovering/Resolving]

NARRATIVE: CASE EVENT DATE: 20210628
